FAERS Safety Report 10159983 (Version 2)
Quarter: 2014Q2

REPORT INFORMATION
  Report Type: Report from Study
  Country: ZA (occurrence: ZA)
  Receive Date: 20140508
  Receipt Date: 20140508
  Transmission Date: 20141212
  Serious: Yes (Other)
  Sender: FDA-Public Use
  Company Number: ZA-ABBVIE-11P-143-0885919-03

PATIENT
  Age: 15 Year
  Sex: Male
  Weight: 55.8 kg

DRUGS (9)
  1. RITONAVIR ORAL SOLUTION [Suspect]
     Indication: HIV INFECTION
     Route: 048
     Dates: start: 20060413, end: 20121115
  2. RITONAVIR ORAL SOLUTION [Suspect]
     Route: 048
     Dates: start: 20131018
  3. ATAZANAVIR [Concomitant]
     Indication: HIV INFECTION
     Route: 048
     Dates: start: 20060413, end: 20121115
  4. ATAZANAVIR [Concomitant]
     Route: 048
     Dates: start: 20131018
  5. STAVUDINE [Concomitant]
     Indication: HIV INFECTION
     Route: 048
     Dates: start: 20060413, end: 20131016
  6. LAMIVUDINE [Concomitant]
     Indication: HIV INFECTION
     Route: 048
     Dates: start: 20060413, end: 20121115
  7. LAMIVUDINE [Concomitant]
     Route: 048
  8. MULTIVITAMIN [Concomitant]
     Indication: PRODUCT USED FOR UNKNOWN INDICATION
     Dates: start: 20050606
  9. ABACAVIR [Concomitant]
     Indication: HIV INFECTION
     Dates: start: 20131016

REACTIONS (5)
  - Blood bilirubin increased [Unknown]
  - Blood bilirubin unconjugated increased [Unknown]
  - Proteinuria [Recovered/Resolved]
  - Blood bilirubin increased [Unknown]
  - Blood bilirubin unconjugated increased [Unknown]
